FAERS Safety Report 25477662 (Version 1)
Quarter: 2025Q2

REPORT INFORMATION
  Report Type: Spontaneous
  Country: CA (occurrence: CA)
  Receive Date: 20250625
  Receipt Date: 20250625
  Transmission Date: 20250717
  Serious: Yes (Hospitalization)
  Sender: ACCORD
  Company Number: None

PATIENT
  Age: 39 Year
  Sex: Female

DRUGS (7)
  1. METHOTREXATE SODIUM [Suspect]
     Active Substance: METHOTREXATE SODIUM
     Indication: Dermatitis atopic
  2. AZATHIOPRINE [Concomitant]
     Active Substance: AZATHIOPRINE
  3. CYCLOSPORINE [Concomitant]
     Active Substance: CYCLOSPORINE
  4. CLOBETASOL [Concomitant]
     Active Substance: CLOBETASOL
  5. MYCOPHENOLATE MOFETIL [Concomitant]
     Active Substance: MYCOPHENOLATE MOFETIL
  6. REMICADE [Concomitant]
     Active Substance: INFLIXIMAB
     Route: 042
  7. TETRACYCLINE [Concomitant]
     Active Substance: TETRACYCLINE

REACTIONS (3)
  - Migraine [Unknown]
  - Infection [Unknown]
  - Renal disorder [Unknown]
